FAERS Safety Report 4325361-3 (Version None)
Quarter: 2004Q1

REPORT INFORMATION
  Report Type: 
  Country: None (occurrence: None)
  Receive Date: 20040324
  Receipt Date: 20040308
  Transmission Date: 20041129
  Serious: Yes (Other)
  Sender: FDA-Public Use
  Company Number: NO-JNJFOC-20040303982

PATIENT
  Sex: Female

DRUGS (5)
  1. RISPERDAL [Suspect]
     Indication: PSYCHOTIC DISORDER
     Dosage: 6 MG, IN 1 DAY; ORAL
     Route: 048
  2. IMOVANE (ZOPICLONE) TABLETS [Suspect]
     Indication: SLEEP DISORDER
     Dosage: AS NECESSARY
  3. VIVAL (DIAZEPAM) TABLETS [Suspect]
     Indication: ANXIETY
     Dosage: ORAL
  4. INSULININSULATARD (INJECTION) INSULININJECTION [Concomitant]
  5. ISOPHANE [Concomitant]

REACTIONS (6)
  - CLEFT LIP AND PALATE [None]
  - CONVULSION [None]
  - DRUG EXPOSURE DURING PREGNANCY [None]
  - NEONATAL DISORDER [None]
  - PREGNANCY [None]
  - THORACIC VERTEBRA INJURY [None]
